FAERS Safety Report 4406558-0 (Version None)
Quarter: 2004Q3

REPORT INFORMATION
  Report Type: 
  Country: None (occurrence: None)
  Receive Date: 20040723
  Receipt Date: 20040701
  Transmission Date: 20050211
  Serious: Yes (Hospitalization, Other)
  Sender: FDA-Public Use
  Company Number: US-GLAXOSMITHKLINE-A0516783A

PATIENT
  Age: 75 Year
  Sex: Female
  Weight: 71.8 kg

DRUGS (7)
  1. COREG [Suspect]
     Indication: HYPERTENSION
     Dosage: 3.125MG TWICE PER DAY
     Route: 048
     Dates: start: 20040618, end: 20040623
  2. LISINOPRIL [Concomitant]
     Indication: PROTEINURIA
     Dosage: 10MG PER DAY
     Route: 048
     Dates: start: 20040318
  3. CLARITIN [Concomitant]
     Dosage: 10MG AS REQUIRED
     Route: 048
     Dates: start: 20040318
  4. PROTONIX [Concomitant]
     Dosage: 40MG PER DAY
     Route: 048
     Dates: start: 20040318
  5. HYDROCODONE [Concomitant]
     Indication: OSTEOARTHRITIS
     Route: 048
     Dates: start: 20040318
  6. LEVOXYL [Concomitant]
     Indication: HYPOTHYROIDISM
     Dosage: 50MCG PER DAY
     Route: 048
     Dates: start: 20040401
  7. NORVASC [Concomitant]
     Indication: HYPERTENSION
     Dosage: 5MG PER DAY
     Route: 048
     Dates: start: 20040412, end: 20040618

REACTIONS (14)
  - BLISTER [None]
  - DERMATITIS BULLOUS [None]
  - DYSPNOEA [None]
  - EOSINOPHILIA [None]
  - ERYTHEMA [None]
  - LOCALISED EXFOLIATION [None]
  - NONSPECIFIC REACTION [None]
  - OEDEMA PERIPHERAL [None]
  - PYREXIA [None]
  - RASH [None]
  - RASH MACULO-PAPULAR [None]
  - STEVENS-JOHNSON SYNDROME [None]
  - SWELLING [None]
  - SWOLLEN TONGUE [None]
